FAERS Safety Report 16806644 (Version 1)
Quarter: 2019Q3

REPORT INFORMATION
  Report Type: Spontaneous
  Country: GB (occurrence: GB)
  Receive Date: 20190913
  Receipt Date: 20190913
  Transmission Date: 20191005
  Serious: Yes (Other)
  Sender: FDA-Public Use
  Company Number: GB-MYLANLABS-2019M1085078

PATIENT
  Age: 31 Year
  Sex: Male
  Weight: 90 kg

DRUGS (9)
  1. NAPROXEN. [Suspect]
     Active Substance: NAPROXEN
     Indication: PRODUCT USED FOR UNKNOWN INDICATION
     Dosage: 500 MILLIGRAM
     Dates: start: 20190326
  2. AMITRIPTYLINE HYDROCHLORIDE. [Concomitant]
     Active Substance: AMITRIPTYLINE HYDROCHLORIDE
     Dosage: EACH NIGHT.
     Dates: start: 20180715
  3. BISACODYL. [Concomitant]
     Active Substance: BISACODYL
     Dosage: TAKE ONE OR TWO TAKEN AT NIGHT
     Dates: start: 20180715
  4. OXYCODONE HYDROCHLORIDE. [Concomitant]
     Active Substance: OXYCODONE HYDROCHLORIDE
     Dosage: EVERY FOUR TO SIX HOURS.
     Dates: start: 20180715
  5. PARACETAMOL [Concomitant]
     Active Substance: ACETAMINOPHEN
     Dosage: FOUR TIMES DAILY. NOT ROUTINELY, REGULARLY.
     Dates: start: 20180715
  6. PROPRANOLOL [Concomitant]
     Active Substance: PROPRANOLOL HYDROCHLORIDE
     Dosage: 3 DOSAGE FORM, QD
     Dates: start: 20180927
  7. DOCUSATE SODIUM. [Concomitant]
     Active Substance: DOCUSATE SODIUM
     Dosage: TAKE 1 OR 2 ONCE DAILY.
     Dates: start: 20180715
  8. SHORTEC [Concomitant]
     Active Substance: OXYCODONE HYDROCHLORIDE
     Dosage: EVERY 4 TO 6 HOURS
     Dates: start: 20180715
  9. LONGTEC [Concomitant]
     Active Substance: OXYCODONE HYDROCHLORIDE
     Indication: PAIN
     Dosage: 4 DOSAGE FORM, QD
     Dates: start: 20180715

REACTIONS (3)
  - Respiratory disorder [Not Recovered/Not Resolved]
  - Swollen tongue [Not Recovered/Not Resolved]
  - Hypersensitivity [Not Recovered/Not Resolved]

NARRATIVE: CASE EVENT DATE: 20190326
